FAERS Safety Report 5606762-X (Version None)
Quarter: 2008Q1

REPORT INFORMATION
  Report Type: 
  Country: None (occurrence: None)
  Receive Date: 20080129
  Receipt Date: 20080117
  Transmission Date: 20080703
  Serious: Yes (Other)
  Sender: FDA-Public Use
  Company Number: GB-RANBAXY-2008RR-12710

PATIENT

DRUGS (1)
  1. ACYCLOVIR [Suspect]
     Dosage: 800 MG, UNK

REACTIONS (6)
  - CONFUSIONAL STATE [None]
  - DIARRHOEA [None]
  - DISORIENTATION [None]
  - NAUSEA [None]
  - SENSORY DISTURBANCE [None]
  - SYNCOPE [None]
